FAERS Safety Report 16993926 (Version 1)
Quarter: 2019Q4

REPORT INFORMATION
  Report Type: Spontaneous
  Country: US (occurrence: US)
  Receive Date: 20190924
  Receipt Date: 20190924
  Transmission Date: 20200122
  Serious: No
  Sender: FDA-Public Use
  Company Number: None

PATIENT
  Age: 65 Year
  Sex: Male

DRUGS (1)
  1. CAPECITABINE TAB 500MG [Suspect]
     Active Substance: CAPECITABINE
     Indication: ANAL CANCER
     Route: 048
     Dates: start: 20190830

REACTIONS (2)
  - Dry skin [None]
  - Skin exfoliation [None]

NARRATIVE: CASE EVENT DATE: 20190924
